FAERS Safety Report 12946430 (Version 1)
Quarter: 2016Q4

REPORT INFORMATION
  Report Type: Spontaneous
  Country: US (occurrence: US)
  Receive Date: 20161115
  Receipt Date: 20161115
  Transmission Date: 20170207
  Serious: No
  Sender: FDA-Public Use
  Company Number: US-ASTRAZENECA-2016SF11735

PATIENT
  Sex: Female

DRUGS (3)
  1. ACECOL (TEMOCAPRIL HYDROCHLORIDE) [Suspect]
     Active Substance: TEMOCAPRIL HYDROCHLORIDE
     Indication: ANTIINFLAMMATORY THERAPY
     Route: 065
  2. PREVACID [Suspect]
     Active Substance: LANSOPRAZOLE
     Route: 065
  3. NEXIUM [Suspect]
     Active Substance: ESOMEPRAZOLE MAGNESIUM
     Indication: GASTROOESOPHAGEAL REFLUX DISEASE
     Dosage: 40.0MG UNKNOWN
     Route: 065

REACTIONS (8)
  - Feeling abnormal [Unknown]
  - Oesophageal disorder [Unknown]
  - Gastrointestinal disorder [Unknown]
  - Vomiting [Unknown]
  - Eructation [Unknown]
  - Intentional product use issue [Unknown]
  - Abdominal distension [Unknown]
  - Ulcer [Unknown]
